FAERS Safety Report 21793065 (Version 4)
Quarter: 2023Q1

REPORT INFORMATION
  Report Type: Report from Study
  Country: US (occurrence: US)
  Receive Date: 20221229
  Receipt Date: 20230320
  Transmission Date: 20230418
  Serious: Yes (Other)
  Sender: FDA-Public Use
  Company Number: US-002147023-NVSC2022US300265

PATIENT
  Sex: Male

DRUGS (1)
  1. ENTRESTO [Suspect]
     Active Substance: SACUBITRIL\VALSARTAN
     Indication: Product used for unknown indication
     Dosage: 1 DOSAGE FORM, BID
     Route: 048
     Dates: start: 202212

REACTIONS (7)
  - Pulmonary oedema [Unknown]
  - Hypotension [Unknown]
  - Ill-defined disorder [Unknown]
  - Asthenia [Recovering/Resolving]
  - Cough [Unknown]
  - Fatigue [Unknown]
  - Hypertension [Unknown]
